FAERS Safety Report 6844823-8 (Version None)
Quarter: 2010Q3

REPORT INFORMATION
  Report Type: 
  Country: None (occurrence: None)
  Receive Date: 20100715
  Receipt Date: 20100707
  Transmission Date: 20110219
  Serious: Yes (Other)
  Sender: FDA-Public Use
  Company Number: JP-PFIZER INC-2010081365

PATIENT
  Age: 88 Year
  Sex: Female

DRUGS (4)
  1. ZITHROMAC SR [Suspect]
     Dosage: UNK
     Route: 048
     Dates: start: 20100616
  2. LANIRAPID [Concomitant]
     Dosage: 0.1 MG, 1X/DAY
     Dates: start: 20100610
  3. FUROSEMID [Concomitant]
     Dosage: 20 MG, 1X/DAY
  4. ALDACTONE [Concomitant]
     Dosage: 25 MG, 1X/DAY

REACTIONS (1)
  - THERAPEUTIC AGENT TOXICITY [None]
